FAERS Safety Report 17443967 (Version 1)
Quarter: 2020Q1

REPORT INFORMATION
  Report Type: Spontaneous
  Country: US (occurrence: US)
  Receive Date: 20200221
  Receipt Date: 20200221
  Transmission Date: 20200409
  Serious: No
  Sender: FDA-Public Use
  Company Number: US-ASTRAZENECA-2020SE24898

PATIENT
  Sex: Female

DRUGS (3)
  1. PRILOSEC OTC [Suspect]
     Active Substance: OMEPRAZOLE MAGNESIUM
     Indication: GASTRIC DISORDER
     Dosage: UNK
     Route: 048
     Dates: start: 20200131
  2. KEPPRA [Concomitant]
     Active Substance: LEVETIRACETAM
  3. PRILOSEC OTC [Suspect]
     Active Substance: OMEPRAZOLE MAGNESIUM
     Indication: CHEST PAIN
     Dosage: UNK
     Route: 048
     Dates: start: 20200131

REACTIONS (2)
  - Product use in unapproved indication [Unknown]
  - Agitation [Not Recovered/Not Resolved]

NARRATIVE: CASE EVENT DATE: 20200131
